FAERS Safety Report 7002315-X (Version None)
Quarter: 2010Q3

REPORT INFORMATION
  Report Type: 
  Country: None (occurrence: None)
  Receive Date: 20100920
  Receipt Date: 20100909
  Transmission Date: 20110219
  Serious: Yes (Other)
  Sender: FDA-Public Use
  Company Number: US-JNJCH-2010020782

PATIENT
  Age: 63 Year
  Sex: Male
  Weight: 99.8 kg

DRUGS (3)
  1. ROLAIDS [Suspect]
     Indication: NEPHROLITHIASIS
     Dosage: TEXT:ONE TABLET ONCE PER DAY
     Route: 048
  2. CHOLESTEROL- AND TRIGLYCERIDE REDUCERS [Concomitant]
     Indication: BLOOD CHOLESTEROL INCREASED
     Dosage: TEXT:UNKNOWN
     Route: 065
  3. COUMADIN [Concomitant]
     Indication: THROMBOSIS
     Dosage: TEXT:UNKNOWN
     Route: 065

REACTIONS (4)
  - OFF LABEL USE [None]
  - THERAPEUTIC RESPONSE UNEXPECTED [None]
  - THROMBOSIS [None]
  - WEIGHT DECREASED [None]
